FAERS Safety Report 14184150 (Version 1)
Quarter: 2017Q4

REPORT INFORMATION
  Report Type: Spontaneous
  Country: SI (occurrence: SI)
  Receive Date: 20171113
  Receipt Date: 20171113
  Transmission Date: 20180321
  Serious: Yes (Hospitalization, Other)
  Sender: FDA-Public Use
  Company Number: SI-JNJFOC-20171110527

PATIENT
  Sex: Female

DRUGS (3)
  1. XARELTO [Suspect]
     Active Substance: RIVAROXABAN
     Indication: ATRIAL FIBRILLATION
     Route: 048
     Dates: start: 201602
  2. XARELTO [Suspect]
     Active Substance: RIVAROXABAN
     Indication: ATRIAL FIBRILLATION
     Route: 048
     Dates: end: 201602
  3. TIABENDAZOLE [Concomitant]
     Active Substance: THIABENDAZOLE
     Route: 065

REACTIONS (10)
  - Glomerular filtration rate decreased [Unknown]
  - Renal impairment [Unknown]
  - Blood pressure increased [Unknown]
  - Pneumonia [Unknown]
  - Presyncope [Unknown]
  - Haematuria [Recovered/Resolved]
  - Joint effusion [Unknown]
  - Glomerular filtration rate decreased [Unknown]
  - Hypertensive nephropathy [Unknown]
  - Chronic kidney disease [Unknown]

NARRATIVE: CASE EVENT DATE: 2015
